FAERS Safety Report 10661632 (Version 1)
Quarter: 2014Q4

REPORT INFORMATION
  Report Type: Spontaneous
  Country: DE (occurrence: None)
  Receive Date: 20141216
  Receipt Date: 20141216
  Transmission Date: 20150529
  Serious: Yes (Hospitalization)
  Sender: FDA-Public Use
  Company Number: IPC201412-000666

PATIENT
  Age: 41 Year
  Sex: Male
  Weight: 85 kg

DRUGS (1)
  1. ALLOPURINOL. [Suspect]
     Active Substance: ALLOPURINOL
     Indication: HYPERURICAEMIA
     Dosage: 300 MG DAILY IN THE EVENING

REACTIONS (15)
  - Blood alkaline phosphatase increased [None]
  - Renal failure [None]
  - Staphylococcal infection [None]
  - Tonsillitis [None]
  - Encephalopathy [None]
  - Stupor [None]
  - Liver transplant [None]
  - Hepatic failure [None]
  - Drug reaction with eosinophilia and systemic symptoms [None]
  - Alanine aminotransferase increased [None]
  - Myopathy [None]
  - Multi-organ failure [None]
  - Haemofiltration [None]
  - Post procedural complication [None]
  - Blood bilirubin increased [None]
